FAERS Safety Report 14097724 (Version 4)
Quarter: 2017Q4

REPORT INFORMATION
  Report Type: Report from Study
  Country: None (occurrence: IT)
  Receive Date: 20171017
  Receipt Date: 20171204
  Transmission Date: 20180321
  Serious: Yes (Hospitalization, Other)
  Sender: FDA-Public Use
  Company Number: IT-BIOVITRUM-2017IT0930

PATIENT
  Age: 13 Year
  Sex: Female
  Weight: 47.8 kg

DRUGS (1)
  1. ORFADIN [Suspect]
     Active Substance: NITISINONE
     Indication: TYROSINAEMIA
     Dates: start: 20071108, end: 20170815

REACTIONS (5)
  - Liver transplant [Recovered/Resolved]
  - Alpha 1 foetoprotein increased [Not Recovered/Not Resolved]
  - Hepatocellular carcinoma [Recovered/Resolved]
  - Epilepsy [Unknown]
  - Amino acid level increased [Unknown]

NARRATIVE: CASE EVENT DATE: 20170623
